FAERS Safety Report 21456354 (Version 3)
Quarter: 2022Q4

REPORT INFORMATION
  Report Type: Report from Study
  Country: CA (occurrence: CA)
  Receive Date: 20221014
  Receipt Date: 20221214
  Transmission Date: 20230113
  Serious: Yes (Other)
  Sender: FDA-Public Use
  Company Number: CA-ABBVIE-4154352

PATIENT
  Sex: Male

DRUGS (1)
  1. RINVOQ [Suspect]
     Active Substance: UPADACITINIB
     Indication: Rheumatoid arthritis
     Dosage: STRENGTH 15 MG
     Route: 048
     Dates: start: 20220109

REACTIONS (3)
  - Basal cell carcinoma [Recovered/Resolved]
  - Arthralgia [Unknown]
  - Grip strength decreased [Unknown]

NARRATIVE: CASE EVENT DATE: 20220101
